FAERS Safety Report 8205656 (Version 3)
Quarter: 2012Q4

REPORT INFORMATION
  Report Type: 
  Country: US (occurrence: US)
  Receive Date: 20111028
  Receipt Date: 20121205
  Transmission Date: 20130627
  Serious: Yes (Death, Hospitalization)
  Sender: FDA-Public Use
  Company Number: US-ASTELLAS-2011US006891

PATIENT
  Sex: Female

DRUGS (9)
  1. TARCEVA [Suspect]
     Indication: NON-SMALL CELL LUNG CANCER
     Dosage: 150 mg, UID/QD
     Route: 048
     Dates: start: 20110112
  2. TARCEVA [Suspect]
     Dosage: 75 mg, UID/QD
     Route: 048
     Dates: start: 20110126
  3. TARCEVA [Suspect]
     Dosage: 100 mg, UID/QD
     Route: 048
     Dates: start: 20110204
  4. TARCEVA [Suspect]
     Dosage: 150 mg, UID/QD
     Route: 048
     Dates: start: 20110302, end: 20110411
  5. AVASTIN [Suspect]
     Indication: NON-SMALL CELL LUNG CANCER
     Dosage: 2 DF, Unknown/D
     Route: 065
     Dates: start: 201106, end: 20111007
  6. PEMETREXED [Suspect]
     Indication: PRODUCT USED FOR UNKNOWN INDICATION
     Dosage: UNK
     Route: 065
     Dates: start: 201106, end: 20111007
  7. CARBOPLATIN [Concomitant]
     Indication: PRODUCT USED FOR UNKNOWN INDICATION
     Dosage: UNK
     Route: 065
  8. TAXOL [Concomitant]
     Indication: PRODUCT USED FOR UNKNOWN INDICATION
     Dosage: UNK
     Route: 065
  9. CHEMOTHERAPEUTICS NOS [Concomitant]
     Indication: PRODUCT USED FOR UNKNOWN INDICATION
     Dosage: UNK
     Route: 065

REACTIONS (4)
  - Fall [Unknown]
  - Disease progression [Unknown]
  - Diarrhoea [Unknown]
  - Leukoencephalopathy [Fatal]
